FAERS Safety Report 22043021 (Version 2)
Quarter: 2025Q2

REPORT INFORMATION
  Report Type: Spontaneous
  Country: AU (occurrence: AU)
  Receive Date: 20230228
  Receipt Date: 20250624
  Transmission Date: 20250717
  Serious: Yes (Other)
  Sender: ORGANON
  Company Number: AU-ORGANON-O2302AUS002400

PATIENT
  Age: 21 Year
  Sex: Female

DRUGS (2)
  1. ETONOGESTREL [Suspect]
     Active Substance: ETONOGESTREL
  2. ESCITALOPRAM [Concomitant]
     Active Substance: ESCITALOPRAM OXALATE

REACTIONS (7)
  - General anaesthesia [Unknown]
  - Abnormal uterine bleeding [Unknown]
  - Complication associated with device [Unknown]
  - Complication of device removal [Unknown]
  - Device deployment issue [Unknown]
  - Device issue [Unknown]
  - Device placement issue [Unknown]
